FAERS Safety Report 24792272 (Version 1)
Quarter: 2024Q4

REPORT INFORMATION
  Report Type: Spontaneous
  Country: IL (occurrence: IL)
  Receive Date: 20241231
  Receipt Date: 20241231
  Transmission Date: 20250115
  Serious: Yes (Life-Threatening, Hospitalization, Other)
  Sender: RANBAXY
  Company Number: IL-SUN PHARMACEUTICAL INDUSTRIES LTD-2024R1-486974

PATIENT
  Age: 92 Year
  Sex: Female

DRUGS (4)
  1. AMLODIPINE [Suspect]
     Active Substance: AMLODIPINE BESYLATE
     Indication: Chronic obstructive pulmonary disease
     Dosage: 10 MILLIGRAM, QD
     Route: 065
  2. BISOPROLOL [Suspect]
     Active Substance: BISOPROLOL
     Indication: Chronic obstructive pulmonary disease
     Dosage: 5 MILLIGRAM, QD
     Route: 065
  3. CANDESARTAN [Suspect]
     Active Substance: CANDESARTAN
     Indication: Chronic obstructive pulmonary disease
     Dosage: 16 MILLIGRAM, QD
     Route: 065
  4. CLONIDINE [Suspect]
     Active Substance: CLONIDINE
     Indication: Chronic obstructive pulmonary disease
     Dosage: 0.3 MILLIGRAM, BID
     Route: 065

REACTIONS (4)
  - Therapy non-responder [Unknown]
  - Condition aggravated [Unknown]
  - Respiratory failure [Unknown]
  - Respiratory acidosis [Unknown]
